FAERS Safety Report 10386260 (Version 9)
Quarter: 2015Q1

REPORT INFORMATION
  Report Type: Report from Study
  Country: FR (occurrence: FR)
  Receive Date: 20140815
  Receipt Date: 20150218
  Transmission Date: 20150720
  Serious: Yes (Hospitalization, Other)
  Sender: FDA-Public Use
  Company Number: PHHO2014FR009597

PATIENT
  Age: 9 Year
  Sex: Male
  Weight: 39.3 kg

DRUGS (2)
  1. ACZ885 [Suspect]
     Active Substance: CANAKINUMAB
     Indication: JUVENILE IDIOPATHIC ARTHRITIS
     Dosage: 4 MG/KG, QW4
     Route: 058
     Dates: start: 20110622
  2. ACZ885 [Suspect]
     Active Substance: CANAKINUMAB
     Dosage: 4 MG/KG, QW4
     Route: 058
     Dates: start: 20140626, end: 20140626

REACTIONS (4)
  - Autoimmune hepatitis [Unknown]
  - Hepatitis [Recovered/Resolved]
  - Juvenile idiopathic arthritis [Recovered/Resolved]
  - Histiocytosis haematophagic [Recovered/Resolved]

NARRATIVE: CASE EVENT DATE: 20140620
